FAERS Safety Report 13906099 (Version 2)
Quarter: 2017Q3

REPORT INFORMATION
  Report Type: Spontaneous
  Country: JP (occurrence: JP)
  Receive Date: 20170825
  Receipt Date: 20170914
  Transmission Date: 20171127
  Serious: Yes (Other)
  Sender: FDA-Public Use
  Company Number: JP-GLAXOSMITHKLINE-JP2017JPN129023

PATIENT
  Age: 7 Decade
  Sex: Male

DRUGS (1)
  1. AVOLVE [Suspect]
     Active Substance: DUTASTERIDE
     Indication: BENIGN PROSTATIC HYPERPLASIA
     Dosage: 0.5 MG, QD
     Route: 048

REACTIONS (9)
  - Oedema peripheral [Unknown]
  - Inflammation [Unknown]
  - Right ventricular failure [Unknown]
  - Anaemia [Unknown]
  - Dyspnoea exertional [Unknown]
  - Diastolic dysfunction [Unknown]
  - Eosinophilia [Recovering/Resolving]
  - Gastric cancer [Unknown]
  - Chest X-ray abnormal [Recovering/Resolving]
